FAERS Safety Report 7703772-3 (Version None)
Quarter: 2011Q3

REPORT INFORMATION
  Report Type: 
  Country: None (occurrence: None)
  Receive Date: 20110823
  Receipt Date: 20110816
  Transmission Date: 20111222
  Serious: Yes (Hospitalization)
  Sender: FDA-Public Use
  Company Number: JP-B.I. PHARMACEUTICALS,INC./RIDGEFIELD-2011-BP-16920NB

PATIENT
  Age: 79 Year
  Sex: Male

DRUGS (5)
  1. SEREVENT [Concomitant]
     Indication: ASTHMA
     Dosage: 100 MCG
     Route: 055
  2. LASIX [Concomitant]
     Indication: CARDIAC FAILURE
     Dosage: 20 MCG
     Route: 048
  3. BLOPRESS/ CANDESARTAN CILEXETIL [Concomitant]
     Indication: HYPERTENSION
     Dosage: 4 MG
     Route: 048
  4. CASODEX [Concomitant]
     Indication: PROSTATE CANCER
     Dosage: 80 MCG
     Route: 048
  5. PRAMIPEXOLE DIHYDROCHLORIDE [Suspect]
     Indication: PARKINSON'S DISEASE
     Dosage: 0.25 MG
     Route: 048
     Dates: end: 20110720

REACTIONS (2)
  - PYREXIA [None]
  - CONSTIPATION [None]
